FAERS Safety Report 8270152-4 (Version None)
Quarter: 2012Q2

REPORT INFORMATION
  Report Type: 
  Country: None (occurrence: None)
  Receive Date: 20120410
  Receipt Date: 20120402
  Transmission Date: 20120825
  Serious: Yes (Hospitalization, Other)
  Sender: FDA-Public Use
  Company Number: PHHY2010US39057

PATIENT
  Sex: Female
  Weight: 51.4 kg

DRUGS (7)
  1. LORTAB [Concomitant]
     Indication: PAIN
     Dosage: UNK UKN, UNK
     Route: 048
     Dates: start: 20081215
  2. EXJADE [Suspect]
     Dosage: 250 MG DAILY
     Route: 048
  3. AMOXICILLIN [Concomitant]
     Indication: SICKLE CELL ANAEMIA
     Dosage: 250 MG, BID
     Route: 048
     Dates: start: 20100315
  4. HYDREA [Concomitant]
     Indication: SICKLE CELL ANAEMIA
     Dosage: 500 MG DAILY
     Route: 048
     Dates: start: 20111201
  5. FOLIC ACID [Concomitant]
     Indication: SICKLE CELL ANAEMIA
     Dosage: 1 MG DAILY
     Route: 048
     Dates: start: 20080403
  6. EXJADE [Suspect]
     Indication: SERUM FERRITIN INCREASED
     Dosage: 500 MG DAILY
     Route: 048
     Dates: start: 20090427, end: 20100401
  7. IBUPROFEN [Concomitant]
     Indication: PAIN
     Dosage: 800 MG, TID
     Route: 048
     Dates: start: 20100329

REACTIONS (3)
  - ABDOMINAL DISCOMFORT [None]
  - ABDOMINAL PAIN UPPER [None]
  - URINARY TRACT INFECTION [None]
